FAERS Safety Report 9759357 (Version 1)
Quarter: 2013Q4

REPORT INFORMATION
  Report Type: Spontaneous
  Country: US (occurrence: None)
  Receive Date: 20131216
  Receipt Date: 20131216
  Transmission Date: 20140711
  Serious: Yes (Disabling)
  Sender: FDA-Public Use
  Company Number: 163-21880-12040985(0)

PATIENT
  Age: 70 Year
  Sex: Male

DRUGS (1)
  1. REVLIMID [Suspect]
     Indication: PLASMA CELL MYELOMA
     Dosage: 10 MG, 1 IN 1 D, PO?25 MG, 1 IN 1 D, PO ?10MG-15MG-25MG, 1 IN 1 D, PO ?10 MG, 21 IN 21 D , PO

REACTIONS (3)
  - Back pain [None]
  - Skin burning sensation [None]
  - Neuropathy peripheral [None]
